FAERS Safety Report 5323377-1 (Version None)
Quarter: 2007Q2

REPORT INFORMATION
  Report Type: 
  Country: None (occurrence: None)
  Receive Date: 20070514
  Receipt Date: 20070504
  Transmission Date: 20071010
  Serious: Yes (Hospitalization)
  Sender: FDA-Public Use
  Company Number: PHBS2006NO13251

PATIENT
  Age: 11 Year
  Sex: Male
  Weight: 30 kg

DRUGS (3)
  1. RITALIN LA [Suspect]
     Indication: ATTENTION DEFICIT/HYPERACTIVITY DISORDER
     Dosage: 80 MG/D
     Route: 048
  2. RITALIN LA [Suspect]
     Dosage: 20 MG, BID
     Route: 048
     Dates: start: 20060801
  3. RISPERDAL [Concomitant]
     Dosage: 0.5 MG, QHS
     Route: 065

REACTIONS (7)
  - AREFLEXIA [None]
  - CONFUSIONAL STATE [None]
  - ENCEPHALITIS [None]
  - FATIGUE [None]
  - HEADACHE [None]
  - MIGRAINE [None]
  - STRESS [None]
